FAERS Safety Report 21393775 (Version 3)
Quarter: 2022Q4

REPORT INFORMATION
  Report Type: Spontaneous
  Country: RO (occurrence: RO)
  Receive Date: 20220930
  Receipt Date: 20221019
  Transmission Date: 20230113
  Serious: Yes (Other)
  Sender: FDA-Public Use
  Company Number: RO-AMGEN-ROUSP2022164837

PATIENT
  Age: 52 Year
  Sex: Female

DRUGS (12)
  1. NPLATE [Suspect]
     Active Substance: ROMIPLOSTIM
     Indication: Immune thrombocytopenia
     Dosage: 6 MICROGRAM PER KILOGRAM
     Route: 065
  2. NPLATE [Suspect]
     Active Substance: ROMIPLOSTIM
     Dosage: 1 MICROGRAM PER KILOGRAM
     Route: 065
     Dates: start: 20190515
  3. NPLATE [Suspect]
     Active Substance: ROMIPLOSTIM
     Dosage: 2 MICROGRAM PER KILOGRAM
     Route: 065
     Dates: start: 20190523
  4. NPLATE [Suspect]
     Active Substance: ROMIPLOSTIM
     Dosage: 2 MICROGRAM PER KILOGRAM
     Route: 065
     Dates: start: 201906
  5. NPLATE [Suspect]
     Active Substance: ROMIPLOSTIM
     Dosage: 3 MICROGRAM PER KILOGRAM
     Route: 065
     Dates: start: 20190903
  6. NPLATE [Suspect]
     Active Substance: ROMIPLOSTIM
     Dosage: 4 MICROGRAM PER KILOGRAM
     Route: 065
     Dates: start: 20190918
  7. NPLATE [Suspect]
     Active Substance: ROMIPLOSTIM
     Dosage: 5 MICROGRAM PER KILOGRAM
     Route: 065
     Dates: start: 201910
  8. NPLATE [Suspect]
     Active Substance: ROMIPLOSTIM
     Dosage: 4 MICROGRAM PER KILOGRAM
     Route: 065
     Dates: start: 202110
  9. NPLATE [Suspect]
     Active Substance: ROMIPLOSTIM
     Dosage: 3 MICROGRAM PER KILOGRAM
     Route: 065
     Dates: start: 202201
  10. NPLATE [Suspect]
     Active Substance: ROMIPLOSTIM
     Dosage: 2 MICROGRAM PER KILOGRAM
     Route: 065
     Dates: start: 202203
  11. THIAMAZOLUM [Concomitant]
     Dosage: UNK
  12. METHYLPREDNISOLONE [Concomitant]
     Active Substance: METHYLPREDNISOLONE
     Dosage: UNK

REACTIONS (4)
  - Thrombocytopenia [Recovered/Resolved]
  - Thyroidectomy [Unknown]
  - Basophilia [Unknown]
  - Monocytosis [Unknown]

NARRATIVE: CASE EVENT DATE: 20190523
